FAERS Safety Report 4858892-8 (Version None)
Quarter: 2005Q4

REPORT INFORMATION
  Report Type: 
  Country: None (occurrence: None)
  Receive Date: 20051219
  Receipt Date: 20050822
  Transmission Date: 20060501
  Serious: No
  Sender: FDA-Public Use
  Company Number: US-GLAXOSMITHKLINE-A0571408A

PATIENT
  Age: 32 Year
  Sex: Female

DRUGS (1)
  1. EQUATE NTS 21MG [Suspect]
     Dates: start: 20050817, end: 20050821

REACTIONS (5)
  - APPLICATION SITE PAIN [None]
  - APPLICATION SITE REACTION [None]
  - HEADACHE [None]
  - NECK PAIN [None]
  - NERVOUSNESS [None]
